FAERS Safety Report 4877813-5 (Version None)
Quarter: 2005Q4

REPORT INFORMATION
  Report Type: 
  Country: None (occurrence: None)
  Receive Date: 20051206
  Receipt Date: 20050912
  Transmission Date: 20060501
  Serious: No
  Sender: FDA-Public Use
  Company Number: USA0509107935

PATIENT
  Age: 45 Year
  Sex: Male

DRUGS (1)
  1. CYMBALTA (DULOXETINE HYDROCHLORIDE) [Suspect]
     Indication: DEPRESSION

REACTIONS (2)
  - ABDOMINAL DISCOMFORT [None]
  - IRRITABILITY [None]
